FAERS Safety Report 19522930 (Version 5)
Quarter: 2021Q3

REPORT INFORMATION
  Report Type: Spontaneous
  Country: US (occurrence: US)
  Receive Date: 20210713
  Receipt Date: 20210913
  Transmission Date: 20211014
  Serious: No
  Sender: FDA-Public Use
  Company Number: US-BIOGEN-2021BI01027758

PATIENT
  Age: 65 Year
  Sex: Female

DRUGS (25)
  1. DALFAMPRIDINE. [Suspect]
     Active Substance: DALFAMPRIDINE
     Indication: PRODUCT USED FOR UNKNOWN INDICATION
     Route: 065
  2. TAGAMET HB [Concomitant]
     Active Substance: CIMETIDINE
     Route: 065
  3. ULTIMATE PROBIOTIC FORMUL SUPER PROBIOTIC [Concomitant]
     Route: 065
  4. TRIAMTERENE AND HYDROCHLOROTHIAZIDE [Concomitant]
     Active Substance: HYDROCHLOROTHIAZIDE\TRIAMTERENE
     Route: 065
  5. VUMERITY [Suspect]
     Active Substance: DIROXIMEL FUMARATE
     Route: 048
     Dates: start: 20210702, end: 20210704
  6. MUCINEX [Concomitant]
     Active Substance: GUAIFENESIN
     Route: 065
  7. LEXAPRO [Concomitant]
     Active Substance: ESCITALOPRAM OXALATE
     Route: 065
  8. ALLEGRA ALLERGY [Concomitant]
     Active Substance: FEXOFENADINE HYDROCHLORIDE
     Route: 065
  9. VITAMIN C [Concomitant]
     Active Substance: ASCORBIC ACID
     Route: 065
  10. BUPROPION. [Concomitant]
     Active Substance: BUPROPION
     Route: 065
  11. VUMERITY [Suspect]
     Active Substance: DIROXIMEL FUMARATE
     Route: 048
     Dates: start: 20210527
  12. TOLTERODINE TARTRATE. [Concomitant]
     Active Substance: TOLTERODINE TARTRATE
     Route: 065
  13. LISINOPRIL. [Concomitant]
     Active Substance: LISINOPRIL
     Route: 065
  14. HYDROCHLOROTHIAZIDE. [Concomitant]
     Active Substance: HYDROCHLOROTHIAZIDE
     Route: 065
  15. TRIAMTERENE AND HYDROCHLOROTHIAZIDE [Concomitant]
     Active Substance: HYDROCHLOROTHIAZIDE\TRIAMTERENE
     Route: 065
  16. OTHER THERAPEUTIC PRODUCTS [Concomitant]
     Active Substance: UNSPECIFIED INGREDIENT
     Route: 065
  17. VITAMIN D3 [Concomitant]
     Active Substance: CHOLECALCIFEROL
     Dosage: 2000 UNITS
     Route: 065
  18. BLADDER CONTROL/GO?LE [Concomitant]
     Route: 065
  19. BUPROPION. [Concomitant]
     Active Substance: BUPROPION
     Route: 065
  20. ALBUTEROL. [Concomitant]
     Active Substance: ALBUTEROL
     Route: 065
  21. LEXAPRO [Concomitant]
     Active Substance: ESCITALOPRAM OXALATE
     Route: 065
  22. LORAZEPAM. [Concomitant]
     Active Substance: LORAZEPAM
     Route: 065
  23. MECLIZINE HCL [Concomitant]
     Active Substance: MECLIZINE HYDROCHLORIDE
     Route: 065
  24. VUMERITY [Suspect]
     Active Substance: DIROXIMEL FUMARATE
     Indication: MULTIPLE SCLEROSIS
     Dosage: STARTING DOSE
     Route: 048
     Dates: start: 20210624, end: 20210701
  25. TOLTERODINE TARTRATE. [Concomitant]
     Active Substance: TOLTERODINE TARTRATE
     Route: 065

REACTIONS (5)
  - Therapeutic product effect decreased [Unknown]
  - Multiple sclerosis [Not Recovered/Not Resolved]
  - Bedridden [Recovered/Resolved]
  - Feeling abnormal [Recovered/Resolved]
  - Fatigue [Recovered/Resolved]

NARRATIVE: CASE EVENT DATE: 20210624
